FAERS Safety Report 9121221 (Version 1)
Quarter: 2013Q1

REPORT INFORMATION
  Report Type: Spontaneous
  Country: BE (occurrence: BE)
  Receive Date: 20130225
  Receipt Date: 20130225
  Transmission Date: 20140127
  Serious: Yes (Other)
  Sender: FDA-Public Use
  Company Number: BE-ROCHE-1194358

PATIENT
  Age: 43 Year
  Sex: Female

DRUGS (2)
  1. HERCEPTIN [Suspect]
     Indication: BREAST CANCER
     Route: 065
  2. TAXOTERE [Concomitant]

REACTIONS (3)
  - Thrombocytopenia [Recovered/Resolved]
  - Heart rate increased [Unknown]
  - Chills [Unknown]
